FAERS Safety Report 5025846-0 (Version None)
Quarter: 2006Q2

REPORT INFORMATION
  Report Type: 
  Country: None (occurrence: None)
  Receive Date: 20060608
  Receipt Date: 20030318
  Transmission Date: 20061013
  Serious: No
  Sender: FDA-Public Use
  Company Number: 2003-03-2281

PATIENT
  Sex: Female
  Weight: 41 kg

DRUGS (7)
  1. ETHYOL [Suspect]
     Indication: PROPHYLAXIS
     Dosage: INTRAVENOUS
     Route: 042
     Dates: start: 20030114, end: 20030210
  2. ETHYOL [Suspect]
     Indication: PROPHYLAXIS
     Dosage: INTRAVENOUS
     Route: 042
     Dates: start: 20030114
  3. ETHYOL [Suspect]
     Indication: PROPHYLAXIS
     Dosage: INTRAVENOUS
     Route: 042
     Dates: start: 20030219
  4. RADIATION THERAPY [Suspect]
     Indication: HYPOPHARYNGEAL CANCER
     Dosage: OTHER
     Dates: start: 20030114
  5. TAXOL [Suspect]
     Indication: HYPOPHARYNGEAL CANCER
     Dates: start: 20030203
  6. COMPAZINE [Concomitant]
  7. ZANTAC [Concomitant]

REACTIONS (3)
  - BLISTER [None]
  - RASH ERYTHEMATOUS [None]
  - RASH PRURITIC [None]
